FAERS Safety Report 18280092 (Version 1)
Quarter: 2020Q3

REPORT INFORMATION
  Report Type: Spontaneous
  Country: BE (occurrence: BE)
  Receive Date: 20200918
  Receipt Date: 20200918
  Transmission Date: 20201103
  Serious: Yes (Other)
  Sender: FDA-Public Use
  Company Number: BE-ROCHE-2679327

PATIENT
  Sex: Male

DRUGS (8)
  1. AVASTIN [Suspect]
     Active Substance: BEVACIZUMAB
     Indication: METASTASES TO LUNG
  2. FLUOROURACIL. [Concomitant]
     Active Substance: FLUOROURACIL
  3. VITAMIN C [Concomitant]
     Active Substance: ASCORBIC ACID
  4. STIVARGA [Concomitant]
     Active Substance: REGORAFENIB
  5. IRINOTECAN [Concomitant]
     Active Substance: IRINOTECAN
  6. OXALIPLATIN. [Concomitant]
     Active Substance: OXALIPLATIN
  7. AVASTIN [Suspect]
     Active Substance: BEVACIZUMAB
     Indication: RECTAL CANCER
     Dosage: UNKNOWN
     Route: 065
  8. FOLINIC ACID [Concomitant]
     Active Substance: LEUCOVORIN

REACTIONS (2)
  - Lymphadenopathy [Unknown]
  - Metastases to liver [Unknown]
